FAERS Safety Report 17818810 (Version 2)
Quarter: 2020Q2

REPORT INFORMATION
  Report Type: Spontaneous
  Country: IT (occurrence: IT)
  Receive Date: 20200523
  Receipt Date: 20200612
  Transmission Date: 20200714
  Serious: Yes (Other)
  Sender: FDA-Public Use
  Company Number: IT-ROCHE-2606424

PATIENT
  Age: 42 Year
  Sex: Male
  Weight: 74 kg

DRUGS (1)
  1. AVASTIN [Suspect]
     Active Substance: BEVACIZUMAB
     Indication: DIABETIC RETINAL OEDEMA
     Dosage: STRENGTH: 25 MG/ML.?MOST RECENT DOSE ON 17/FEB/2020.
     Route: 031
     Dates: start: 20200217

REACTIONS (2)
  - Visual impairment [Recovered/Resolved with Sequelae]
  - Uveitis [Recovered/Resolved with Sequelae]

NARRATIVE: CASE EVENT DATE: 20200218
